FAERS Safety Report 5499031-2 (Version None)
Quarter: 2007Q4

REPORT INFORMATION
  Report Type: 
  Country: None (occurrence: None)
  Receive Date: 20071026
  Receipt Date: 20070521
  Transmission Date: 20080405
  Serious: No
  Sender: FDA-Public Use
  Company Number: A0652119A

PATIENT
  Age: 69 Year
  Sex: Female

DRUGS (7)
  1. ADVAIR DISKUS 100/50 [Suspect]
     Indication: DRUG USE FOR UNKNOWN INDICATION
     Dosage: 1PUFF PER DAY
     Route: 055
     Dates: start: 20070518, end: 20070519
  2. NASONEX [Concomitant]
  3. ATENOLOL [Concomitant]
  4. RANITIDINE HCL [Concomitant]
  5. KLONOPIN [Concomitant]
  6. VITAMIN [Concomitant]
  7. ASPIRIN [Concomitant]

REACTIONS (1)
  - PRURITUS GENERALISED [None]
